FAERS Safety Report 9301213 (Version 1)
Quarter: 2013Q2

REPORT INFORMATION
  Report Type: Spontaneous
  Country: US (occurrence: US)
  Receive Date: 20130521
  Receipt Date: 20130521
  Transmission Date: 20140414
  Serious: No
  Sender: FDA-Public Use
  Company Number: US-BRISTOL-MYERS SQUIBB COMPANY-17244203

PATIENT
  Age: 45 Year
  Sex: Female
  Weight: 61.9 kg

DRUGS (2)
  1. BARACLUDE [Suspect]
     Dates: start: 200812
  2. BENADRYL [Concomitant]

REACTIONS (2)
  - Palpitations [Unknown]
  - Dyspnoea [Unknown]
